FAERS Safety Report 19170474 (Version 1)
Quarter: 2021Q2

REPORT INFORMATION
  Report Type: Spontaneous
  Country: US (occurrence: US)
  Receive Date: 20210422
  Receipt Date: 20210422
  Transmission Date: 20210717
  Serious: No
  Sender: FDA-Public Use
  Company Number: US-BAUSCH-BL-2021-011363

PATIENT
  Sex: Female

DRUGS (1)
  1. DILTIAZEM HCL ER 120MG [Suspect]
     Active Substance: DILTIAZEM HYDROCHLORIDE
     Indication: PRODUCT USED FOR UNKNOWN INDICATION
     Dosage: EXTENDED RELEASE
     Route: 065

REACTIONS (2)
  - Headache [Unknown]
  - Dizziness [Unknown]
